FAERS Safety Report 24189431 (Version 1)
Quarter: 2024Q3

REPORT INFORMATION
  Report Type: Spontaneous
  Country: CN (occurrence: CN)
  Receive Date: 20240808
  Receipt Date: 20240808
  Transmission Date: 20241017
  Serious: Yes (Other)
  Sender: GE HEALTHCARE
  Company Number: CN-GE HEALTHCARE-2024CSU008738

PATIENT
  Age: 47 Year
  Sex: Female

DRUGS (3)
  1. OMNIPAQUE [Suspect]
     Active Substance: IOHEXOL
     Indication: Angiogram cerebral
     Dosage: 200 ML, TOTAL
     Route: 042
     Dates: start: 20240718, end: 20240718
  2. OMNIPAQUE [Suspect]
     Active Substance: IOHEXOL
     Indication: Aortogram
  3. OMNIPAQUE [Suspect]
     Active Substance: IOHEXOL
     Indication: Arteriogram renal

REACTIONS (6)
  - Dysphoria [Recovered/Resolved]
  - Tension [Recovered/Resolved]
  - Contrast media allergy [Unknown]
  - Heart rate increased [Recovered/Resolved]
  - Palpitations [Recovered/Resolved]
  - Nausea [Recovered/Resolved]

NARRATIVE: CASE EVENT DATE: 20240718
